FAERS Safety Report 8857184 (Version 1)
Quarter: 2012Q4

REPORT INFORMATION
  Report Type: Report from Study
  Country: JP (occurrence: JP)
  Receive Date: 20121024
  Receipt Date: 20121024
  Transmission Date: 20130627
  Serious: Yes (Other)
  Sender: FDA-Public Use
  Company Number: JP-VERTEX PHARMACEUTICAL INC.-2012-023419

PATIENT
  Age: 66 Year
  Sex: Female

DRUGS (6)
  1. VX-950 [Suspect]
     Indication: HEPATITIS C
     Dosage: 1500 mg, qd
     Route: 048
     Dates: start: 20120903
  2. RIBAVIRIN [Suspect]
     Indication: HEPATITIS C
     Dosage: 600 mg, qd
     Route: 048
     Dates: start: 20120903, end: 20120909
  3. RIBAVIRIN [Suspect]
     Dosage: 400 mg, qd
     Route: 048
     Dates: start: 20120910, end: 20120917
  4. RIBAVIRIN [Suspect]
     Dosage: 200 mg, qd
     Route: 048
     Dates: start: 20120918
  5. PEGINTERFERON ALFA-2B [Suspect]
     Dosage: 1.32 ?g/kg, weekly
     Route: 058
     Dates: start: 20120903
  6. NORVASC [Concomitant]
     Dosage: 5 mg, qd
     Route: 048

REACTIONS (1)
  - Hypokalaemia [Recovered/Resolved]
